FAERS Safety Report 12262189 (Version 1)
Quarter: 2016Q2

REPORT INFORMATION
  Report Type: Spontaneous
  Country: JP (occurrence: JP)
  Receive Date: 20160413
  Receipt Date: 20160413
  Transmission Date: 20160815
  Serious: Yes (Hospitalization)
  Sender: FDA-Public Use
  Company Number: JP-CIPLA LTD.-2016JP03667

PATIENT

DRUGS (3)
  1. FINASTERIDE. [Suspect]
     Active Substance: FINASTERIDE
     Dosage: 1 MG, QOD
     Route: 048
     Dates: start: 201204
  2. FINASTERIDE. [Suspect]
     Active Substance: FINASTERIDE
     Indication: ANDROGENETIC ALOPECIA
     Dosage: 1 MG, QD
     Route: 048
     Dates: start: 201009
  3. MINOXIDIL. [Suspect]
     Active Substance: MINOXIDIL
     Indication: ANDROGENETIC ALOPECIA
     Dosage: 6 MG, QD
     Route: 048
     Dates: start: 201009

REACTIONS (3)
  - Headache [Recovering/Resolving]
  - Cerebral infarction [Recovered/Resolved]
  - Nausea [Recovering/Resolving]

NARRATIVE: CASE EVENT DATE: 201208
